FAERS Safety Report 19252421 (Version 1)
Quarter: 2021Q2

REPORT INFORMATION
  Report Type: Other
  Country: CA (occurrence: CA)
  Receive Date: 20210513
  Receipt Date: 20210513
  Transmission Date: 20210717
  Serious: Yes (Other)
  Sender: FDA-Public Use
  Company Number: CA-APOTEX-2021AP011483

PATIENT
  Age: 63 Year
  Sex: Female

DRUGS (1)
  1. SALBUTAMOL [Suspect]
     Active Substance: ALBUTEROL
     Indication: PRODUCT USED FOR UNKNOWN INDICATION
     Dosage: UNK
     Route: 065

REACTIONS (9)
  - Oral pain [Unknown]
  - Oropharyngeal pain [Unknown]
  - Throat irritation [Unknown]
  - Suspected product quality issue [Unknown]
  - Throat tightness [Unknown]
  - Oral discomfort [Unknown]
  - Dry mouth [Unknown]
  - Dry throat [Unknown]
  - Pruritus [Unknown]
